FAERS Safety Report 10952124 (Version 1)
Quarter: 2015Q1

REPORT INFORMATION
  Report Type: Spontaneous
  Country: US (occurrence: US)
  Receive Date: 20150325
  Receipt Date: 20150325
  Transmission Date: 20150721
  Serious: Yes (Hospitalization)
  Sender: FDA-Public Use
  Company Number: PHHY2015US032735

PATIENT
  Age: 12 Year
  Sex: Male

DRUGS (4)
  1. ALBUTEROL. [Concomitant]
     Active Substance: ALBUTEROL
     Indication: ASTHMA
     Route: 065
  2. ARIPIPRAZOLE. [Suspect]
     Active Substance: ARIPIPRAZOLE
     Indication: PRODUCT USED FOR UNKNOWN INDICATION
     Route: 065
  3. OLANZAPINE. [Suspect]
     Active Substance: OLANZAPINE
     Indication: PRODUCT USED FOR UNKNOWN INDICATION
     Route: 065
  4. LISDEXAMFETAMINE [Concomitant]
     Active Substance: LISDEXAMFETAMINE
     Indication: ATTENTION DEFICIT/HYPERACTIVITY DISORDER
     Route: 065

REACTIONS (5)
  - Hallucination [Unknown]
  - Extrapyramidal disorder [Unknown]
  - Pain [Unknown]
  - Arthralgia [Unknown]
  - Aggression [Unknown]
